FAERS Safety Report 16535531 (Version 4)
Quarter: 2021Q4

REPORT INFORMATION
  Report Type: Spontaneous
  Country: US (occurrence: US)
  Receive Date: 20190705
  Receipt Date: 20211130
  Transmission Date: 20220304
  Serious: No
  Sender: FDA-Public Use
  Company Number: US-PFIZER INC-2019286193

PATIENT
  Age: 80 Year
  Sex: Female
  Weight: 53 kg

DRUGS (2)
  1. INLYTA [Suspect]
     Active Substance: AXITINIB
     Indication: Metastases to bone
     Dosage: UNK, TWICE A DAY
     Dates: start: 20190621
  2. INLYTA [Suspect]
     Active Substance: AXITINIB
     Dosage: 5 MG, TWO TIMES A DAY (ONE TABLET BY MOUTH DAILY WITH OR WITHOUT FOOD)
     Route: 048

REACTIONS (5)
  - Dysphonia [Unknown]
  - Weight decreased [Unknown]
  - Fatigue [Unknown]
  - Cognitive disorder [Unknown]
  - Off label use [Unknown]

NARRATIVE: CASE EVENT DATE: 20190601
